FAERS Safety Report 10204657 (Version 3)
Quarter: 2014Q2

REPORT INFORMATION
  Report Type: Report from Study
  Country: DE (occurrence: AT)
  Receive Date: 20140529
  Receipt Date: 20140619
  Transmission Date: 20141212
  Serious: Yes (Hospitalization)
  Sender: FDA-Public Use
  Company Number: DE-ACTELION-A-NJ2014-099578

PATIENT
  Age: 72 Year
  Sex: Female
  Weight: 90 kg

DRUGS (2)
  1. VENTAVIS [Suspect]
     Indication: PULMONARY HYPERTENSION
     Dosage: UNK
     Route: 055
     Dates: start: 20140519, end: 201405
  2. VENTAVIS [Suspect]
     Dosage: UNK
     Route: 055
     Dates: start: 201405

REACTIONS (2)
  - Atrial flutter [Recovered/Resolved]
  - Dyspnoea [Recovered/Resolved]
